FAERS Safety Report 4431170-7 (Version None)
Quarter: 2004Q3

REPORT INFORMATION
  Report Type: 
  Country: None (occurrence: None)
  Receive Date: 20040818
  Receipt Date: 20040807
  Transmission Date: 20050211
  Serious: Yes (Other)
  Sender: FDA-Public Use
  Company Number: 200413896BCC

PATIENT
  Age: 81 Year
  Sex: Male
  Weight: 63.5036 kg

DRUGS (7)
  1. MILK OF MAGNESIA TAB [Suspect]
     Dosage: ONCE, ORAL
     Route: 048
     Dates: start: 20040806
  2. NORVASC [Concomitant]
  3. GLUCOTROL [Concomitant]
  4. GLUCOPHAGE [Concomitant]
  5. LASIX [Concomitant]
  6. ALDACTONE [Concomitant]
  7. OTHERS, CANNOT MEMBER [Concomitant]

REACTIONS (1)
  - CARDIAC FAILURE CONGESTIVE [None]
